FAERS Safety Report 5237381-5 (Version None)
Quarter: 2007Q1

REPORT INFORMATION
  Report Type: 
  Country: None (occurrence: None)
  Receive Date: 20070213
  Receipt Date: 20070201
  Transmission Date: 20070707
  Serious: Yes (Other)
  Sender: FDA-Public Use
  Company Number: US-SHR-US-2006-039020

PATIENT
  Age: 58 Year
  Sex: Female
  Weight: 61 kg

DRUGS (7)
  1. BETASERON [Suspect]
     Indication: SECONDARY PROGRESSIVE MULTIPLE SCLEROSIS
     Dosage: 8 MIU, EVERY 2D
     Route: 058
     Dates: start: 20060907, end: 20061130
  2. PROZAC [Concomitant]
     Dosage: 40 MG, UNK
  3. DETROL                                  /USA/ [Concomitant]
  4. GEODON [Concomitant]
  5. KLONOPIN [Concomitant]
  6. CEROVITE [Concomitant]
  7. CALCIUM [Concomitant]

REACTIONS (4)
  - LEUKOPENIA [None]
  - PANCYTOPENIA [None]
  - SPLENOMEGALY [None]
  - THROMBOCYTOPENIA [None]
